FAERS Safety Report 19770424 (Version 3)
Quarter: 2021Q3

REPORT INFORMATION
  Report Type: Spontaneous
  Country: JP (occurrence: JP)
  Receive Date: 20210831
  Receipt Date: 20210915
  Transmission Date: 20211014
  Serious: Yes (Death)
  Sender: FDA-Public Use
  Company Number: JP-ELI_LILLY_AND_COMPANY-JP202108011265

PATIENT
  Age: 85 Year
  Sex: Female

DRUGS (4)
  1. INSULIN GLARGINE [Suspect]
     Active Substance: INSULIN GLARGINE
     Indication: TYPE 2 DIABETES MELLITUS
     Route: 058
  2. CICLOSPORIN [Concomitant]
     Active Substance: CYCLOSPORINE
  3. NICOTINAMIDE [Concomitant]
     Active Substance: NIACINAMIDE
  4. ACHROMYCIN [Concomitant]
     Active Substance: TETRACYCLINE HYDROCHLORIDE

REACTIONS (1)
  - Death [Fatal]
